FAERS Safety Report 5567456-2 (Version None)
Quarter: 2007Q4

REPORT INFORMATION
  Report Type: 
  Country: None (occurrence: None)
  Receive Date: 20071214
  Receipt Date: 20071129
  Transmission Date: 20080405
  Serious: Yes (Life-Threatening)
  Sender: FDA-Public Use
  Company Number: 8028464

PATIENT
  Age: 40 Year
  Sex: Male

DRUGS (5)
  1. KEPPRA [Suspect]
     Dosage: PO
     Route: 048
  2. PRISIUM [Suspect]
     Dosage: PO
     Route: 048
  3. LUMINAL [Suspect]
     Dosage: PO
     Route: 048
  4. VALPROATE SODIUM [Suspect]
     Dosage: PO
     Route: 048
  5. ALCOHOL [Suspect]
     Dosage: PO
     Route: 048

REACTIONS (3)
  - ALCOHOL USE [None]
  - COMA [None]
  - SUICIDE ATTEMPT [None]
